FAERS Safety Report 15165602 (Version 1)
Quarter: 2018Q3

REPORT INFORMATION
  Report Type: Spontaneous
  Country: US (occurrence: US)
  Receive Date: 20180719
  Receipt Date: 20180719
  Transmission Date: 20181010
  Serious: No
  Sender: FDA-Public Use
  Company Number: US-PRINSTON PHARMACEUTICAL INC.-2018PRN00097

PATIENT
  Sex: Male
  Weight: 140.59 kg

DRUGS (4)
  1. LISINOPRIL. [Suspect]
     Active Substance: LISINOPRIL
     Indication: HYPERTENSION
     Dosage: 40 MG, 1X/DAY IN THE MORNING
     Route: 048
     Dates: start: 201802, end: 201803
  2. COMPRESSION STOCKINGS [Concomitant]
  3. LISINOPRIL. [Suspect]
     Active Substance: LISINOPRIL
     Dosage: 60 MG, 1X/DAY
     Dates: start: 201803
  4. VITAMINS [Concomitant]
     Active Substance: VITAMINS

REACTIONS (6)
  - Incorrect dose administered [Not Recovered/Not Resolved]
  - Skin tightness [Recovering/Resolving]
  - Poor quality sleep [Unknown]
  - Flushing [Recovering/Resolving]
  - Drug effect decreased [Not Recovered/Not Resolved]
  - Product substitution issue [Not Recovered/Not Resolved]

NARRATIVE: CASE EVENT DATE: 2018
